FAERS Safety Report 18317804 (Version 1)
Quarter: 2020Q3

REPORT INFORMATION
  Report Type: Spontaneous
  Country: DE (occurrence: DE)
  Receive Date: 20200928
  Receipt Date: 20200928
  Transmission Date: 20201103
  Serious: Yes (Hospitalization)
  Sender: FDA-Public Use
  Company Number: DE-TEVA-2020-DE-1831229

PATIENT
  Age: 57 Year
  Sex: Female

DRUGS (7)
  1. ESOMEPRAZOL [Concomitant]
     Active Substance: ESOMEPRAZOLE
     Dosage: 40 MILLIGRAM DAILY; 1?0?0?0
  2. IBUPROFEN. [Suspect]
     Active Substance: IBUPROFEN
     Dosage: REQUIREMENT
     Route: 065
  3. PERENTEROL [Concomitant]
     Active Substance: SACCHAROMYCES CEREVISIAE
     Dosage: UP TO 2 TIMES A DAY
  4. LEFAX [Concomitant]
     Active Substance: DIMETHICONE
     Dosage: 2 DOSAGE FORMS DAILY; 1?0?1?0, UNIT DOSE : 1 DOSAGE FORMS
  5. BISOPROLOL [Concomitant]
     Active Substance: BISOPROLOL
     Dosage: 5 MILLIGRAM DAILY; UNIT DOSE : 2.5 MG, 1?0?1?0
  6. AZITHROMYCIN ANHYDROUS. [Suspect]
     Active Substance: AZITHROMYCIN ANHYDROUS
     Dosage: DISCONTINUED
     Route: 065
  7. TROMCARDIN [Concomitant]
     Active Substance: MAGNESIUM ASPARTATE\POTASSIUM ASPARTATE
     Dosage: 4 DOSAGE FORMS DAILY; 2?0?2?0, UNIT DOSE : 2 DOSAGE FORMS

REACTIONS (4)
  - Diarrhoea [Unknown]
  - Abdominal pain [Not Recovered/Not Resolved]
  - Gastritis [Recovered/Resolved]
  - Abdominal distension [Not Recovered/Not Resolved]
